FAERS Safety Report 13002119 (Version 2)
Quarter: 2016Q4

REPORT INFORMATION
  Report Type: Report from Study
  Country: CA (occurrence: CA)
  Receive Date: 20161206
  Receipt Date: 20161209
  Transmission Date: 20170207
  Serious: Yes (Hospitalization, Other)
  Sender: FDA-Public Use
  Company Number: CA-TAKEDA-2016TUS019394

PATIENT
  Age: 55 Year
  Sex: Female

DRUGS (8)
  1. INDAPAMIDE. [Concomitant]
     Active Substance: INDAPAMIDE
     Dosage: 2.5 MG, QD
  2. LANTUS [Concomitant]
     Active Substance: INSULIN GLARGINE
     Dosage: 12 MG, QD
  3. PREDNISONE. [Concomitant]
     Active Substance: PREDNISONE
     Dosage: UNK, BID
     Route: 042
  4. AMLODIPINE [Concomitant]
     Active Substance: AMLODIPINE BESYLATE
     Dosage: 7.5 MG, QD
  5. DIAMICRON [Concomitant]
     Active Substance: GLICLAZIDE
     Indication: TYPE 2 DIABETES MELLITUS
     Dosage: UNK, QD
  6. NOVORAPID [Concomitant]
     Active Substance: INSULIN ASPART
     Dosage: 10 MG, TID
  7. VEDOLIZUMAB [Suspect]
     Active Substance: VEDOLIZUMAB
     Indication: COLITIS ULCERATIVE
     Dosage: 300 MG, UNK
     Route: 042
     Dates: start: 20161017
  8. PREDNISONE. [Concomitant]
     Active Substance: PREDNISONE
     Dosage: UNK UNK, QD

REACTIONS (8)
  - Colitis ulcerative [Unknown]
  - Chills [Unknown]
  - Proctocolectomy [Unknown]
  - Heart rate increased [Unknown]
  - Diarrhoea [Unknown]
  - Proctalgia [Unknown]
  - Vomiting [Unknown]
  - Influenza [Unknown]

NARRATIVE: CASE EVENT DATE: 2016
